FAERS Safety Report 5923262-8 (Version None)
Quarter: 2008Q4

REPORT INFORMATION
  Report Type: 
  Country: None (occurrence: None)
  Receive Date: 20081015
  Receipt Date: 20081007
  Transmission Date: 20090506
  Serious: Yes (Other)
  Sender: FDA-Public Use
  Company Number: 2008SP016467

PATIENT
  Age: 64 Year
  Sex: Male
  Weight: 99.7913 kg

DRUGS (3)
  1. MIRALAX [Suspect]
     Indication: CONSTIPATION
     Dosage: ONCE
     Dates: start: 20080812, end: 20080812
  2. LOVAZA [Concomitant]
  3. ICAPS [Concomitant]

REACTIONS (1)
  - ANAPHYLACTIC SHOCK [None]
